FAERS Safety Report 23838076 (Version 2)
Quarter: 2024Q4

REPORT INFORMATION
  Report Type: Spontaneous
  Country: US (occurrence: US)
  Receive Date: 20240509
  Receipt Date: 20241106
  Transmission Date: 20250115
  Serious: Yes (Other)
  Sender: CSL BEHRING
  Company Number: US-BEH-2024171879

PATIENT
  Age: 34 Year
  Sex: Female

DRUGS (7)
  1. HAEGARDA [Suspect]
     Active Substance: HUMAN C1-ESTERASE INHIBITOR
     Indication: Anaphylactic shock
     Dosage: 5000 IU, BIW
     Route: 058
  2. HAEGARDA [Suspect]
     Active Substance: HUMAN C1-ESTERASE INHIBITOR
     Indication: Prophylaxis
     Dosage: 5000 IU, BIW
     Route: 058
  3. Citirizine [Concomitant]
     Dosage: UNK
  4. MONTELUKAST SODIUM [Concomitant]
     Active Substance: MONTELUKAST SODIUM
     Dosage: UNK
  5. RUCONEST [Concomitant]
     Active Substance: CONESTAT ALFA
     Dosage: SOL 2100 UNIT
  6. BRIUMVI [Concomitant]
     Active Substance: UBLITUXIMAB-XIIY
  7. COPAXONE [Concomitant]
     Active Substance: GLATIRAMER ACETATE

REACTIONS (11)
  - Hereditary angioedema [Unknown]
  - Knee operation [Unknown]
  - Hereditary angioedema [Unknown]
  - Multiple sclerosis [Unknown]
  - Arthralgia [Unknown]
  - Off label use [Unknown]
  - Fall [Unknown]
  - Ligament sprain [Unknown]
  - Injection site pain [Unknown]
  - Injection site erythema [Unknown]
  - Fatigue [Unknown]
